FAERS Safety Report 8558801-4 (Version None)
Quarter: 2012Q3

REPORT INFORMATION
  Report Type: 
  Country: None (occurrence: None)
  Receive Date: 20120801
  Receipt Date: 20120628
  Transmission Date: 20120928
  Serious: Yes (Death, Life-Threatening, Hospitalization)
  Sender: FDA-Public Use
  Company Number: US-009507513-1206USA05008

PATIENT

DRUGS (18)
  1. MORPHINE SULFATE [Concomitant]
     Dosage: UNK
     Dates: start: 20120531, end: 20120611
  2. DOMPERIDONE [Concomitant]
     Indication: VOMITING
  3. NUTRITIONAL SUPPLEMENTS [Concomitant]
     Indication: DECREASED APPETITE
     Dosage: UNK
     Dates: start: 20120509
  4. GABAPENTIN [Concomitant]
     Indication: BACK PAIN
     Dosage: UNK
     Dates: start: 20120612
  5. COZAAR [Suspect]
     Indication: HYPERTENSION
     Dosage: UNK
     Route: 048
     Dates: start: 20080101, end: 20120101
  6. NORTRIPTYLINE HYDROCHLORIDE [Concomitant]
     Indication: DEPRESSION
     Dosage: UNK
     Dates: start: 20120612
  7. MORPHINE SULFATE [Concomitant]
     Indication: BACK PAIN
     Dosage: UNK
     Dates: start: 20120612
  8. DIPYRONE INJ [Concomitant]
     Indication: BACK PAIN
     Dosage: UNK
     Dates: start: 20120612, end: 20120612
  9. ALPRAZOLAM [Concomitant]
     Indication: DEPRESSION
  10. FLUOXETINE HYDROCHLORIDE [Concomitant]
     Indication: DEPRESSION
     Dosage: UNK
     Dates: start: 20080101, end: 20120612
  11. LORAZEPAM [Concomitant]
     Indication: DEPRESSION
     Dosage: UNK
     Dates: start: 20120612
  12. OMEPRAZOLE [Concomitant]
     Indication: ABDOMINAL PAIN UPPER
     Dosage: UNK
     Dates: start: 20120531
  13. GIMERACIL (+) OTERACIL POTASSIUM (+) TEGAFUR [Suspect]
     Indication: METASTATIC GASTRIC CANCER
  14. CISPLATIN [Suspect]
     Indication: METASTATIC GASTRIC CANCER
  15. DOMPERIDONE [Concomitant]
     Indication: NAUSEA
     Dosage: UNK
     Dates: start: 20120531
  16. METOCLOPRAMIDE [Concomitant]
     Indication: NAUSEA
     Dosage: UNK
     Dates: start: 20120612, end: 20120612
  17. ACETAMINOPHEN [Concomitant]
     Indication: PAIN
     Dosage: UNK
     Dates: start: 20120614, end: 20120614
  18. METOCLOPRAMIDE [Concomitant]
     Indication: VOMITING
     Dosage: UNK
     Dates: start: 20120613

REACTIONS (1)
  - RENAL FAILURE ACUTE [None]
